FAERS Safety Report 13156752 (Version 3)
Quarter: 2017Q1

REPORT INFORMATION
  Report Type: Spontaneous
  Country: TR (occurrence: TR)
  Receive Date: 20170126
  Receipt Date: 20170218
  Transmission Date: 20170428
  Serious: Yes (Other)
  Sender: FDA-Public Use
  Company Number: TR-AMGEN-TURSP2017012733

PATIENT
  Age: 37 Year
  Sex: Female
  Weight: 96 kg

DRUGS (1)
  1. ENBREL [Suspect]
     Active Substance: ETANERCEPT
     Indication: ANKYLOSING SPONDYLITIS
     Dosage: 50 MG, WEEKLY
     Route: 058

REACTIONS (4)
  - Hypersensitivity [Recovered/Resolved]
  - Blood alkaline phosphatase increased [Unknown]
  - Somnolence [Recovered/Resolved]
  - White blood cell count increased [Unknown]
